FAERS Safety Report 4993267-2 (Version None)
Quarter: 2006Q1

REPORT INFORMATION
  Report Type: 
  Country: None (occurrence: None)
  Receive Date: 20060314
  Receipt Date: 20050812
  Transmission Date: 20060701
  Serious: Yes (Other)
  Sender: FDA-Public Use
  Company Number: 200511535BCC

PATIENT
  Age: 48 Year
  Sex: Male
  Weight: 79.3795 kg

DRUGS (4)
  1. ALEVE (CAPLET) [Suspect]
     Indication: BACK PAIN
     Dosage: 220 MG, PRN, ORAL
     Route: 048
     Dates: end: 20041201
  2. IBUPROFEN [Suspect]
     Dosage: QD
     Dates: end: 20041201
  3. NAPROSYN [Suspect]
     Dosage: QD
     Dates: end: 20041201
  4. PRAVACHOL [Concomitant]

REACTIONS (8)
  - ABDOMINAL DISTENSION [None]
  - ABDOMINAL PAIN UPPER [None]
  - COLONIC POLYP [None]
  - GASTRIC ULCER [None]
  - HAEMANGIOMA OF LIVER [None]
  - HELICOBACTER PYLORI IDENTIFICATION TEST POSITIVE [None]
  - HIATUS HERNIA [None]
  - OESOPHAGITIS [None]
